FAERS Safety Report 14153263 (Version 1)
Quarter: 2017Q4

REPORT INFORMATION
  Report Type: Spontaneous
  Country: US (occurrence: US)
  Receive Date: 20171102
  Receipt Date: 20171102
  Transmission Date: 20180321
  Serious: No
  Sender: FDA-Public Use
  Company Number: US-BAYER-2017-204439

PATIENT
  Sex: Female

DRUGS (20)
  1. MAG-OX [Concomitant]
     Active Substance: MAGNESIUM OXIDE
  2. MAGNESIUM [Concomitant]
     Active Substance: MAGNESIUM
  3. VITAMIN D [Concomitant]
     Active Substance: CHOLECALCIFEROL
     Dosage: 50000 UNT
  4. AMOXICILLIN. [Concomitant]
     Active Substance: AMOXICILLIN
  5. ARMOUR THYROID [Concomitant]
     Active Substance: THYROID, PORCINE
  6. BETASERON [Suspect]
     Active Substance: INTERFERON BETA-1B
     Indication: MULTIPLE SCLEROSIS
     Dosage: 0.25 MG, QOD
     Route: 058
  7. OXYBUTYNIN CHLORIDE. [Concomitant]
     Active Substance: OXYBUTYNIN CHLORIDE
  8. PREDNISONE. [Concomitant]
     Active Substance: PREDNISONE
  9. ALIVEG [Concomitant]
  10. CIPROFLOXACIN. [Concomitant]
     Active Substance: CIPROFLOXACIN
  11. CEFDINIR. [Concomitant]
     Active Substance: CEFDINIR
  12. VALACICLOVIR HYDROCHLORIDE [Concomitant]
     Active Substance: VALACYCLOVIR HYDROCHLORIDE
  13. FLUTICASONE PROPIONATE. [Concomitant]
     Active Substance: FLUTICASONE PROPIONATE
  14. WOMEN^S MULTI [Concomitant]
     Dosage: UNK
  15. MACROBID [Concomitant]
     Active Substance: NITROFURANTOIN\NITROFURANTOIN MONOHYDRATE
  16. BENADRYL ALLERGY [Concomitant]
     Active Substance: DIPHENHYDRAMINE HYDROCHLORIDE
  17. DETROL LA [Concomitant]
     Active Substance: TOLTERODINE TARTRATE
  18. BACLOFEN. [Concomitant]
     Active Substance: BACLOFEN
  19. FLONASE [Concomitant]
     Active Substance: FLUTICASONE PROPIONATE
  20. NITROFURANTOIN MACROCRYSTALS [Concomitant]
     Active Substance: NITROFURANTOIN

REACTIONS (1)
  - Therapeutic product ineffective [Recovered/Resolved]
